FAERS Safety Report 19859313 (Version 1)
Quarter: 2021Q3

REPORT INFORMATION
  Report Type: Spontaneous
  Country: US (occurrence: US)
  Receive Date: 20210920
  Receipt Date: 20210920
  Transmission Date: 20211014
  Serious: Yes (Other)
  Sender: FDA-Public Use
  Company Number: None

PATIENT
  Sex: Male

DRUGS (8)
  1. STELARA [Suspect]
     Active Substance: USTEKINUMAB
     Indication: PSORIASIS
     Dosage: OTHER FREQUENCY:Q 12 WKS;?
     Route: 058
     Dates: start: 20180314
  2. METOPROL SUC [Concomitant]
  3. XARELTO [Concomitant]
     Active Substance: RIVAROXABAN
  4. LISINOPRIL. [Concomitant]
     Active Substance: LISINOPRIL
  5. METFORMIN [Concomitant]
     Active Substance: METFORMIN HYDROCHLORIDE
  6. ATOVASTATIN [Concomitant]
     Active Substance: ATORVASTATIN
  7. GLIMERPIRIDE [Concomitant]
     Active Substance: GLIMEPIRIDE
  8. DOCUSATE SOD [Concomitant]

REACTIONS (1)
  - Shoulder operation [None]
